FAERS Safety Report 5771615-3 (Version None)
Quarter: 2008Q2

REPORT INFORMATION
  Report Type: 
  Country: None (occurrence: None)
  Receive Date: 20080613
  Receipt Date: 20080609
  Transmission Date: 20081010
  Serious: Yes (Other)
  Sender: FDA-Public Use
  Company Number: US-ASTRAZENECA-2008UW11477

PATIENT
  Sex: Female

DRUGS (2)
  1. NEXIUM [Suspect]
     Route: 048
  2. VICODIN [Concomitant]

REACTIONS (3)
  - LIVER DISORDER [None]
  - NAUSEA [None]
  - NEOPLASM MALIGNANT [None]
